FAERS Safety Report 7565862-8 (Version None)
Quarter: 2011Q2

REPORT INFORMATION
  Report Type: 
  Country: None (occurrence: None)
  Receive Date: 20110623
  Receipt Date: 20110617
  Transmission Date: 20111010
  Serious: Yes (Hospitalization, Other)
  Sender: FDA-Public Use
  Company Number: US-PFIZER INC-2009262111

PATIENT
  Sex: Female

DRUGS (4)
  1. EFFEXOR [Concomitant]
     Dosage: UNK
     Dates: start: 20060501, end: 20080109
  2. SEROQUEL [Concomitant]
     Dosage: UNK
     Dates: start: 20060501, end: 20080109
  3. CLONAZEPAM [Concomitant]
     Dosage: UNK
     Dates: start: 20040301, end: 20080109
  4. CHANTIX [Suspect]
     Dosage: UNK
     Route: 048
     Dates: start: 20070101

REACTIONS (4)
  - HOMICIDAL IDEATION [None]
  - AGGRESSION [None]
  - DEPRESSION [None]
  - SUICIDE ATTEMPT [None]
